FAERS Safety Report 13924551 (Version 1)
Quarter: 2017Q3

REPORT INFORMATION
  Report Type: Spontaneous
  Country: US (occurrence: US)
  Receive Date: 20170831
  Receipt Date: 20170831
  Transmission Date: 20171127
  Serious: Yes (Hospitalization)
  Sender: FDA-Public Use
  Company Number: US-CIPLA LTD.-2017US15139

PATIENT

DRUGS (4)
  1. SALMETEROL [Suspect]
     Active Substance: SALMETEROL
     Indication: ASTHMA
     Dosage: UNK
     Route: 065
  2. FORMOTEROL/BUDESONIDE [Suspect]
     Active Substance: BUDESONIDE\FORMOTEROL
     Indication: ASTHMA
     Dosage: UNK
     Route: 065
  3. TIOTROPIUM [Suspect]
     Active Substance: TIOTROPIUM
     Indication: ASTHMA
     Dosage: UNK
     Route: 065
  4. MONTELUKAST [Suspect]
     Active Substance: MONTELUKAST SODIUM
     Indication: ASTHMA
     Dosage: UNK
     Route: 065

REACTIONS (2)
  - Asthma [Unknown]
  - Hereditary haemorrhagic telangiectasia [Unknown]
